FAERS Safety Report 9790223 (Version 1)
Quarter: 2013Q4

REPORT INFORMATION
  Report Type: Spontaneous
  Country: US (occurrence: US)
  Receive Date: 20131231
  Receipt Date: 20131231
  Transmission Date: 20140711
  Serious: No
  Sender: FDA-Public Use
  Company Number: US-009507513-1312USA010337

PATIENT
  Sex: Male

DRUGS (2)
  1. REBETOL [Suspect]
     Route: 048
  2. PEGINTRON [Suspect]
     Indication: HEPATITIS C
     Dosage: UNK
     Dates: start: 2009, end: 2010

REACTIONS (1)
  - Fatigue [Unknown]
